FAERS Safety Report 23622725 (Version 2)
Quarter: 2025Q2

REPORT INFORMATION
  Report Type: Spontaneous
  Country: PT (occurrence: PT)
  Receive Date: 20240312
  Receipt Date: 20250630
  Transmission Date: 20250717
  Serious: Yes (Other)
  Sender: PFIZER
  Company Number: PT-FreseniusKabi-FK202403587

PATIENT
  Age: 42 Year
  Sex: Male

DRUGS (5)
  1. IDARUBICIN HYDROCHLORIDE [Suspect]
     Active Substance: IDARUBICIN HYDROCHLORIDE
     Indication: Philadelphia positive chronic myeloid leukaemia
  2. CYTARABINE [Suspect]
     Active Substance: CYTARABINE
     Indication: Philadelphia positive chronic myeloid leukaemia
  3. FLUDARABINE PHOSPHATE [Suspect]
     Active Substance: FLUDARABINE PHOSPHATE
     Indication: Philadelphia positive chronic myeloid leukaemia
  4. DASATINIB [Concomitant]
     Active Substance: DASATINIB
     Indication: Philadelphia positive chronic myeloid leukaemia
  5. IMATINIB [Concomitant]
     Active Substance: IMATINIB
     Indication: Philadelphia positive chronic myeloid leukaemia

REACTIONS (4)
  - Bone marrow failure [Recovered/Resolved]
  - Immune reconstitution inflammatory syndrome [Recovered/Resolved]
  - Acute respiratory distress syndrome [Recovered/Resolved]
  - Pancytopenia [Unknown]
